FAERS Safety Report 13561860 (Version 3)
Quarter: 2017Q3

REPORT INFORMATION
  Report Type: Spontaneous
  Country: US (occurrence: US)
  Receive Date: 20170518
  Receipt Date: 20170829
  Transmission Date: 20171127
  Serious: No
  Sender: FDA-Public Use
  Company Number: US-009507513-1705USA007909

PATIENT
  Age: 17 Year
  Sex: Female
  Weight: 63.04 kg

DRUGS (3)
  1. NEXPLANON [Suspect]
     Active Substance: ETONOGESTREL
     Dosage: ONE IMPLANT, EVERY THREE YEARS
     Route: 058
     Dates: start: 20170414
  2. PROVENTIL [Concomitant]
     Active Substance: ALBUTEROL
     Dosage: INHALER
  3. NEXPLANON [Suspect]
     Active Substance: ETONOGESTREL
     Indication: CONTRACEPTION
     Dosage: ONE IMPLANT, EVERY THREE YEARS
     Route: 058
     Dates: start: 20140225, end: 20170414

REACTIONS (4)
  - Incorrect drug administration duration [Unknown]
  - Implant site pain [Unknown]
  - Device deployment issue [Not Recovered/Not Resolved]
  - Joint injury [Unknown]

NARRATIVE: CASE EVENT DATE: 2016
